FAERS Safety Report 5652080-3 (Version None)
Quarter: 2008Q1

REPORT INFORMATION
  Report Type: 
  Country: None (occurrence: None)
  Receive Date: 20080305
  Receipt Date: 20080225
  Transmission Date: 20080703
  Serious: Yes (Life-Threatening, Hospitalization)
  Sender: FDA-Public Use
  Company Number: DK-PFIZER INC-2008018053

PATIENT
  Sex: Female

DRUGS (1)
  1. RELPAX [Suspect]
     Indication: MIGRAINE
     Route: 048
     Dates: start: 20011029, end: 20080123

REACTIONS (4)
  - ANGIOEDEMA [None]
  - DIARRHOEA [None]
  - SWOLLEN TONGUE [None]
  - URTICARIA [None]
